FAERS Safety Report 4406732-3 (Version None)
Quarter: 2004Q3

REPORT INFORMATION
  Report Type: 
  Country: None (occurrence: None)
  Receive Date: 20040715
  Receipt Date: 20040706
  Transmission Date: 20050211
  Serious: Yes (Hospitalization)
  Sender: FDA-Public Use
  Company Number: 2004PK01179

PATIENT
  Age: 68 Year
  Sex: Female
  Weight: 80 kg

DRUGS (2)
  1. NOLVADEX [Suspect]
     Indication: BREAST CANCER
     Dosage: 20 MG DAILY PO
     Route: 048
     Dates: start: 19950810, end: 20000918
  2. NO STUDY DRUG [Suspect]
     Indication: BREAST CANCER
     Dates: start: 20000919

REACTIONS (4)
  - CERVICAL CYST [None]
  - CERVICITIS [None]
  - DISEASE RECURRENCE [None]
  - ENDOMETRIAL HYPERPLASIA [None]
